FAERS Safety Report 7606077-4 (Version None)
Quarter: 2011Q3

REPORT INFORMATION
  Report Type: 
  Country: None (occurrence: None)
  Receive Date: 20110713
  Receipt Date: 20110707
  Transmission Date: 20111222
  Serious: Yes (Hospitalization)
  Sender: FDA-Public Use
  Company Number: US-ELI_LILLY_AND_COMPANY-US200910004055

PATIENT
  Sex: Male
  Weight: 102.49 kg

DRUGS (6)
  1. METFORMIN HCL [Concomitant]
     Indication: DIABETES MELLITUS
     Dosage: 2500 MG, DAILY (1/D)
     Dates: start: 20050426, end: 20090316
  2. FOSINOPRIL SODIUM [Concomitant]
     Indication: BLOOD PRESSURE
     Dosage: 10 MG, QD
     Dates: start: 20050308, end: 20091216
  3. BYETTA [Suspect]
     Indication: DIABETES MELLITUS
     Dosage: 10 UG, 2/D
     Route: 058
     Dates: start: 20060619, end: 20090316
  4. CALCIUM CARBONATE [Concomitant]
  5. VYTORIN [Concomitant]
     Indication: BLOOD CHOLESTEROL
     Dosage: UNK
     Dates: start: 20051220, end: 20090205
  6. ACTOS [Concomitant]
     Indication: DIABETES MELLITUS
     Dosage: 30 MG, QD
     Dates: end: 20090326

REACTIONS (5)
  - MALIGNANT ASCITES [None]
  - ADENOCARCINOMA PANCREAS [None]
  - OFF LABEL USE [None]
  - PANCREATIC CARCINOMA RECURRENT [None]
  - JAUNDICE CHOLESTATIC [None]
